FAERS Safety Report 15466424 (Version 2)
Quarter: 2018Q4

REPORT INFORMATION
  Report Type: Spontaneous
  Country: GB (occurrence: GB)
  Receive Date: 20181004
  Receipt Date: 20181015
  Transmission Date: 20190204
  Serious: Yes (Death, Life-Threatening, Hospitalization, Other)
  Sender: FDA-Public Use
  Company Number: GB-009507513-1809GBR010512

PATIENT
  Age: 43 Year
  Sex: Male
  Weight: 98 kg

DRUGS (6)
  1. PIROXICAM. [Concomitant]
     Active Substance: PIROXICAM
     Dosage: UNK
  2. ACIDEX (CALCIUM CARBONATE (+) SODIUM ALGINATE (+) SODIUM BICARBONATE) [Concomitant]
     Active Substance: CALCIUM CARBONATE\SODIUM ALGINATE\SODIUM BICARBONATE
     Dosage: UNK
  3. LANSOPRAZOLE. [Concomitant]
     Active Substance: LANSOPRAZOLE
     Dosage: UNK
  4. LISINOPRIL. [Suspect]
     Active Substance: LISINOPRIL
     Indication: ESSENTIAL HYPERTENSION
     Dosage: 20 MG, UNK
     Route: 048
     Dates: start: 20171218, end: 20180731
  5. COLCHICINE. [Concomitant]
     Active Substance: COLCHICINE
     Dosage: UNK
  6. FLOXACILLIN SODIUM [Concomitant]
     Active Substance: FLUCLOXACILLIN SODIUM ANHYDROUS
     Dosage: UNK

REACTIONS (7)
  - Seizure [Unknown]
  - Respiratory arrest [Unknown]
  - Dyspnoea [Unknown]
  - Angioedema [Unknown]
  - Syncope [Unknown]
  - Brain hypoxia [Fatal]
  - Loss of consciousness [Unknown]

NARRATIVE: CASE EVENT DATE: 20180731
